FAERS Safety Report 21551112 (Version 1)
Quarter: 2022Q4

REPORT INFORMATION
  Report Type: Spontaneous
  Country: US (occurrence: None)
  Receive Date: 20221102
  Receipt Date: 20221102
  Transmission Date: 20230113
  Serious: No
  Sender: FDA-Public Use
  Company Number: None

PATIENT
  Sex: Female

DRUGS (1)
  1. VERZENIO [Suspect]
     Active Substance: ABEMACICLIB
     Indication: Breast cancer female
     Dosage: FREQUENCY : TWICE A DAY;  TAKE 1 TABLET BY MOUTH 2 TIMES DAILY FOR 2 WEEKS ON AND 2 WEEKS OFF?
     Route: 048
     Dates: start: 20220909

REACTIONS (2)
  - Drug ineffective [None]
  - Therapy cessation [None]
